FAERS Safety Report 4738253-2 (Version None)
Quarter: 2005Q3

REPORT INFORMATION
  Report Type: 
  Country: None (occurrence: None)
  Receive Date: 20050809
  Receipt Date: 20050728
  Transmission Date: 20060218
  Serious: Yes (Life-Threatening, Hospitalization)
  Sender: FDA-Public Use
  Company Number: PHBS2005FI10966

PATIENT
  Age: 59 Year
  Sex: Female

DRUGS (8)
  1. LEPONEX [Suspect]
     Indication: SCHIZOPHRENIA
     Dosage: UNK, UNK
     Route: 048
     Dates: start: 20050519, end: 20050707
  2. TENOX [Concomitant]
     Dosage: 40 MG/D
     Route: 048
     Dates: start: 20050518
  3. DIVINA [Concomitant]
     Dosage: 21 DAYS THEN BREAK 1 WEEK
     Route: 048
  4. MOVICOL [Concomitant]
     Dosage: UNK, TID
     Route: 048
     Dates: start: 20050530
  5. DIAPAM [Concomitant]
     Dosage: 5 MG, PRN
     Route: 048
  6. RISPERDAL [Concomitant]
     Dosage: 1 MG, PRN
     Route: 048
  7. ORUDIS [Concomitant]
     Route: 065
  8. NICORETTE ^HOECHST MARION ROUSSEL^ [Concomitant]
     Dosage: 40 MG/D
     Route: 065
     Dates: start: 20050524

REACTIONS (9)
  - AGRANULOCYTOSIS [None]
  - C-REACTIVE PROTEIN INCREASED [None]
  - EAR INFECTION [None]
  - NEUTROPHIL COUNT DECREASED [None]
  - ORAL PAIN [None]
  - PALATAL OEDEMA [None]
  - SEPSIS [None]
  - STAPHYLOCOCCAL INFECTION [None]
  - WHITE BLOOD CELL COUNT DECREASED [None]
